FAERS Safety Report 13583390 (Version 2)
Quarter: 2017Q3

REPORT INFORMATION
  Report Type: Report from Study
  Country: None (occurrence: BR)
  Receive Date: 20170526
  Receipt Date: 20170824
  Transmission Date: 20171127
  Serious: Yes (Hospitalization, Other)
  Sender: FDA-Public Use
  Company Number: BR-ABBVIE-17K-020-1985850-00

PATIENT
  Age: 25 Year
  Sex: Male
  Weight: 67 kg

DRUGS (4)
  1. PREDNISONE. [Concomitant]
     Active Substance: PREDNISONE
     Indication: CROHN^S DISEASE
     Route: 048
     Dates: start: 2016
  2. HUMIRA [Suspect]
     Active Substance: ADALIMUMAB
     Indication: CROHN^S DISEASE
     Dosage: DAY 0
     Route: 058
     Dates: start: 20160530, end: 20160530
  3. HUMIRA [Suspect]
     Active Substance: ADALIMUMAB
     Dosage: WEEK 2
     Route: 058
     Dates: start: 201606, end: 201606
  4. HUMIRA [Suspect]
     Active Substance: ADALIMUMAB
     Route: 058
     Dates: end: 201703

REACTIONS (15)
  - Nosocomial infection [Recovered/Resolved]
  - Schistosomiasis [Recovered/Resolved]
  - Immunodeficiency [Recovering/Resolving]
  - Fungal oesophagitis [Recovering/Resolving]
  - Pneumonia [Recovered/Resolved]
  - Nosocomial infection [Recovered/Resolved]
  - Nosocomial infection [Recovered/Resolved]
  - Sinusitis [Recovered/Resolved]
  - Gastritis fungal [Recovering/Resolving]
  - Abdominal lymphadenopathy [Unknown]
  - Sinusitis [Recovered/Resolved]
  - Intestinal tuberculosis [Not Recovered/Not Resolved]
  - Pneumonia [Recovering/Resolving]
  - Gastrointestinal disorder [Unknown]
  - Pyrexia [Recovered/Resolved]

NARRATIVE: CASE EVENT DATE: 201606
